FAERS Safety Report 6597952-0 (Version None)
Quarter: 2010Q1

REPORT INFORMATION
  Report Type: 
  Country: None (occurrence: None)
  Receive Date: 20100223
  Receipt Date: 20091216
  Transmission Date: 20100710
  Serious: No
  Sender: FDA-Public Use
  Company Number: US-ALLERGAN-0917318US

PATIENT
  Sex: Female

DRUGS (2)
  1. BOTOX COSMETIC [Suspect]
     Indication: SKIN WRINKLING
     Dosage: 32 UNITS, SINGLE
     Route: 030
     Dates: start: 20090910, end: 20090910
  2. BOTOX COSMETIC [Suspect]
     Indication: MIGRAINE
     Dosage: 24 UNITS, SINGLE
     Route: 030
     Dates: start: 20091203, end: 20091203

REACTIONS (3)
  - DIZZINESS [None]
  - INJECTION SITE HAEMATOMA [None]
  - VISION BLURRED [None]
